FAERS Safety Report 4442980-4 (Version None)
Quarter: 2004Q3

REPORT INFORMATION
  Report Type: 
  Country: None (occurrence: None)
  Receive Date: 20040903
  Receipt Date: 20040630
  Transmission Date: 20050211
  Serious: Yes (Other)
  Sender: FDA-Public Use
  Company Number: 2004UW13566

PATIENT
  Age: 57 Year
  Sex: Male
  Weight: 102.0593 kg

DRUGS (4)
  1. CRESTOR [Suspect]
     Indication: BLOOD CHOLESTEROL INCREASED
     Dosage: 10 MG QD PO
     Route: 048
     Dates: start: 20040529
  2. BENICAR [Suspect]
     Dosage: 40/12.5
     Dates: start: 20040529
  3. ASPIRIN [Concomitant]
  4. FISH OIL [Concomitant]

REACTIONS (1)
  - AMNESIA [None]
